FAERS Safety Report 18760965 (Version 1)
Quarter: 2021Q1

REPORT INFORMATION
  Report Type: Report from Study
  Country: BR (occurrence: BR)
  Receive Date: 20210119
  Receipt Date: 20210119
  Transmission Date: 20210419
  Serious: Yes (Other)
  Sender: FDA-Public Use
  Company Number: BR-JNJFOC-20210119248

PATIENT
  Age: 16 Year
  Sex: Female
  Weight: 43 kg

DRUGS (1)
  1. REMICADE [Suspect]
     Active Substance: INFLIXIMAB
     Indication: CROHN^S DISEASE
     Route: 042
     Dates: start: 20200709

REACTIONS (4)
  - Purulence [Unknown]
  - Product use issue [Unknown]
  - Anal fistula [Unknown]
  - Off label use [Unknown]

NARRATIVE: CASE EVENT DATE: 2020
